FAERS Safety Report 24218877 (Version 1)
Quarter: 2024Q3

REPORT INFORMATION
  Report Type: Spontaneous
  Country: US (occurrence: US)
  Receive Date: 20240816
  Receipt Date: 20240816
  Transmission Date: 20241016
  Serious: Yes (Hospitalization)
  Sender: SANOFI AVENTIS
  Company Number: US-SA-SAC20240503001230

PATIENT
  Sex: Female

DRUGS (2)
  1. KEVZARA [Suspect]
     Active Substance: SARILUMAB
     Indication: Rheumatoid arthritis
     Dosage: 150 MG, QOW
     Route: 058
  2. KEVZARA [Suspect]
     Active Substance: SARILUMAB
     Indication: Osteoporosis

REACTIONS (4)
  - Hospitalisation [Unknown]
  - Procedural pain [Unknown]
  - Surgery [Unknown]
  - Product use in unapproved indication [Unknown]
